FAERS Safety Report 5730267-9 (Version None)
Quarter: 2008Q2

REPORT INFORMATION
  Report Type: 
  Country: None (occurrence: None)
  Receive Date: 20080502
  Receipt Date: 20080424
  Transmission Date: 20081010
  Serious: Yes (Death, Hospitalization)
  Sender: FDA-Public Use
  Company Number: 100#08#2008-02410

PATIENT
  Age: 84 Year
  Sex: Female

DRUGS (2)
  1. METHOTREXATE [Suspect]
     Indication: BREAST CANCER
     Dosage: 2.5 MG TWICE A DAY, 2 DAYS WEEKLY ORAL
     Route: 048
  2. CYCLOPHOSPHAMIDE [Suspect]
     Indication: BREAST CANCER
     Dosage: 50 MG ORAL
     Route: 048

REACTIONS (14)
  - ANAEMIA [None]
  - ASTHENIA [None]
  - BLOOD BILIRUBIN INCREASED [None]
  - BONE MARROW TOXICITY [None]
  - DIARRHOEA [None]
  - HAEMOGLOBIN DECREASED [None]
  - HYPERKALAEMIA [None]
  - INTESTINAL OBSTRUCTION [None]
  - LEUKOPENIA [None]
  - LIVER FUNCTION TEST ABNORMAL [None]
  - NAUSEA [None]
  - NEUTROPENIA [None]
  - PERFORMANCE STATUS DECREASED [None]
  - RENAL FAILURE ACUTE [None]
